FAERS Safety Report 17209329 (Version 1)
Quarter: 2019Q4

REPORT INFORMATION
  Report Type: Report from Study
  Country: CO (occurrence: CO)
  Receive Date: 20191227
  Receipt Date: 20191227
  Transmission Date: 20200122
  Serious: Yes (Other)
  Sender: FDA-Public Use
  Company Number: CO-ACTELION-A-CH2019-196413

PATIENT
  Age: 51 Year
  Sex: Female
  Weight: 83 kg

DRUGS (2)
  1. RIOCIGUAT. [Concomitant]
     Active Substance: RIOCIGUAT
     Dosage: 2.5 MG, TID
     Route: 048
  2. OPSUMIT [Suspect]
     Active Substance: MACITENTAN
     Indication: PULMONARY ARTERIAL HYPERTENSION
     Dosage: 10 MG, QD
     Route: 048
     Dates: start: 20190926

REACTIONS (5)
  - Drug ineffective [Unknown]
  - Dizziness [Not Recovered/Not Resolved]
  - Headache [Not Recovered/Not Resolved]
  - Pulmonary thrombosis [Unknown]
  - Apathy [Not Recovered/Not Resolved]

NARRATIVE: CASE EVENT DATE: 2019
